FAERS Safety Report 4413385-7 (Version None)
Quarter: 2004Q3

REPORT INFORMATION
  Report Type: 
  Country: None (occurrence: None)
  Receive Date: 20040728
  Receipt Date: 20040715
  Transmission Date: 20050211
  Serious: No
  Sender: FDA-Public Use
  Company Number: 2004223413CA

PATIENT
  Age: 65 Year
  Sex: Female

DRUGS (7)
  1. XALATAN [Suspect]
     Indication: GLAUCOMA
     Dosage: 1 GTT, BID, OPHTHALMIC
     Route: 047
     Dates: start: 20031001
  2. ALPHAGAN [Suspect]
     Indication: GLAUCOMA
     Dosage: 1 GTT, QD, OPHTHALMIC
     Route: 047
  3. COSOPT (TIMILOL MALEATE, DORZOLAMIDE HYDROCHLORIDE) [Suspect]
     Indication: GLAUCOMA
     Dosage: OPHTHALMIC
     Route: 047
     Dates: end: 20040714
  4. FOSAMAX [Concomitant]
  5. TRANXENE [Concomitant]
  6. RATIO-BUNOLOL [Concomitant]
  7. SYNTHROID [Concomitant]

REACTIONS (5)
  - EYE IRRITATION [None]
  - EYE PRURITUS [None]
  - EYE REDNESS [None]
  - EYE SWELLING [None]
  - POST PROCEDURAL COMPLICATION [None]
